FAERS Safety Report 6192542-6 (Version None)
Quarter: 2009Q2

REPORT INFORMATION
  Report Type: 
  Country: None (occurrence: None)
  Receive Date: 20090518
  Receipt Date: 20090508
  Transmission Date: 20091009
  Serious: Yes (Life-Threatening, Hospitalization)
  Sender: FDA-Public Use
  Company Number: US-NOVOPROD-286303

PATIENT
  Sex: Female

DRUGS (3)
  1. NOVOLOG [Suspect]
     Indication: TYPE 1 DIABETES MELLITUS
     Dosage: 13 IU, QD (4U BREAKFAST + LUNCH; 5U DINNER)
     Route: 058
     Dates: start: 20060101
  2. NOVOLOG [Suspect]
  3. LANTUS [Concomitant]
     Indication: TYPE 1 DIABETES MELLITUS
     Dosage: 9 IU, QD (PM)
     Route: 058

REACTIONS (4)
  - BLOOD GLUCOSE DECREASED [None]
  - DEVICE FAILURE [None]
  - HYPOGLYCAEMIC UNCONSCIOUSNESS [None]
  - ROAD TRAFFIC ACCIDENT [None]
